FAERS Safety Report 9682795 (Version 2)
Quarter: 2013Q4

REPORT INFORMATION
  Report Type: Spontaneous
  Country: GB (occurrence: GB)
  Receive Date: 20131112
  Receipt Date: 20131112
  Transmission Date: 20140711
  Serious: Yes (Other)
  Sender: FDA-Public Use
  Company Number: PHFR2013GB005614

PATIENT
  Age: 35 Year
  Sex: Female
  Weight: 57 kg

DRUGS (2)
  1. TOBI PODHALER [Suspect]
     Dosage: 112 MG, BID
     Route: 055
     Dates: start: 20130909, end: 20130913
  2. VENTOLINE INHALATOR [Concomitant]
     Dosage: UNK, BID
     Route: 055

REACTIONS (2)
  - Bronchospasm [Recovered/Resolved]
  - Cough [Unknown]
